FAERS Safety Report 9219776 (Version 1)
Quarter: 2013Q1

REPORT INFORMATION
  Report Type: Spontaneous
  Country: US (occurrence: None)
  Receive Date: 20120828
  Receipt Date: 20120828
  Transmission Date: 20140127
  Serious: Yes (Other)
  Sender: FDA-Public Use
  Company Number: 2012BH000931

PATIENT
  Age: 54 Year
  Sex: Female
  Weight: 99.79 kg

DRUGS (24)
  1. KIOVIG [Suspect]
     Indication: MYASTHENIA GRAVIS
     Route: 042
     Dates: start: 201110, end: 201112
  2. KIOVIG [Suspect]
     Indication: MULTIPLE SCLEROSIS
     Route: 042
     Dates: start: 201110, end: 201112
  3. KIOVIG [Suspect]
     Indication: OFF LABEL USE
     Route: 042
     Dates: start: 201110, end: 201112
  4. LEXAPRO (ESCITALOPRAM OXALATE) (UNKNOWN) [Concomitant]
  5. ALBUTEROL (UNKNOWN) [Concomitant]
  6. MESTINON (PYRIDOSTIGIMINE BROMIDE) (UNKNOWN) [Concomitant]
  7. NEXIUM [Concomitant]
  8. SYNTHROID (LEVOTHYROXINE SODIUM) (UNKNOWN) [Concomitant]
  9. AVONEX (INTERFERON BETA-1A) (UNKNOWN) [Concomitant]
  10. LANTUS (INSULIN GLARGINE) (UNKNOWN) [Concomitant]
  11. PREDNISONE (PREDNISONE) (UNKNOWN) [Concomitant]
  12. BUDESONIDE W/FORMOTEROL FUMARATE (BUDESONIDE W/FORMOTEROL FUMARATE) (UNKNOWN) [Concomitant]
  13. FLONASE (FLUTICASONE PROPIONATE) (NASAL SPRAY) [Concomitant]
  14. XANAX (ALPRAZOLAM) (UNKNOWN) [Concomitant]
  15. FIORICET (AXOTAL/00727001/) (TABLET) [Concomitant]
  16. LOMOTIL (LOMOTIL) (UNKNOWN) [Concomitant]
  17. HYDROCODONE (HYDROCODONE) (UNKNOWN) [Concomitant]
  18. INSULIN (INSULIN) (UNKNOWN) [Concomitant]
  19. PHENERGAN (UNKNOWN0 [Concomitant]
  20. OXYGEN (OXYGEN) (UNKNOWN) [Concomitant]
  21. TEMAZEPAM (TEMAZEPAM) (UNKNOWN) [Concomitant]
  22. TRIAZOLAM (TRIAZOLAM) (UNKNOWN) [Concomitant]
  23. IBUPROFEN (UBUPROFEN) (UNKNOWN) [Concomitant]
  24. BENADRYL (UNKNOWN) [Concomitant]

REACTIONS (6)
  - Thrombosis [None]
  - Dyspnoea [None]
  - Pain in extremity [None]
  - Fatigue [None]
  - Swelling [None]
  - Phlebitis [None]
